FAERS Safety Report 11861869 (Version 1)
Quarter: 2015Q4

REPORT INFORMATION
  Report Type: Spontaneous
  Country: US (occurrence: None)
  Receive Date: 20151222
  Receipt Date: 20151222
  Transmission Date: 20160305
  Serious: No
  Sender: FDA-Public Use
  Company Number: None

PATIENT
  Age: 16 Year
  Sex: Female

DRUGS (1)
  1. VANCOMYCIN 500MG MYLAN [Suspect]
     Active Substance: VANCOMYCIN
     Indication: CYSTIC FIBROSIS
     Route: 055
     Dates: start: 20140512

REACTIONS (1)
  - Lung disorder [None]

NARRATIVE: CASE EVENT DATE: 20151216
